FAERS Safety Report 4834587-1 (Version None)
Quarter: 2005Q4

REPORT INFORMATION
  Report Type: 
  Country: None (occurrence: None)
  Receive Date: 20051122
  Receipt Date: 20050426
  Transmission Date: 20060501
  Serious: No
  Sender: FDA-Public Use
  Company Number: US-BRISTOL-MYERS SQUIBB COMPANY-12946570

PATIENT
  Age: 63 Year
  Sex: Female
  Weight: 67 kg

DRUGS (4)
  1. PRAVACHOL [Suspect]
  2. CALCIUM GLUCONATE [Concomitant]
  3. FOSAMAX [Concomitant]
  4. VITAMINS [Concomitant]

REACTIONS (1)
  - OEDEMA PERIPHERAL [None]
